FAERS Safety Report 9693502 (Version 1)
Quarter: 2013Q4

REPORT INFORMATION
  Report Type: Spontaneous
  Country: GB (occurrence: GB)
  Receive Date: 20131118
  Receipt Date: 20131118
  Transmission Date: 20140711
  Serious: Yes (Other)
  Sender: FDA-Public Use
  Company Number: GB-TEVA-443536ISR

PATIENT
  Age: 60 Year
  Sex: Male

DRUGS (5)
  1. LOSARTAN [Suspect]
     Indication: HYPERTENSION
     Route: 048
     Dates: start: 20130920
  2. ASPIRIN [Concomitant]
  3. AMITRIPTYLINE [Concomitant]
  4. BETAMETHASONE VALERATE [Concomitant]
  5. PIROXICAM [Concomitant]

REACTIONS (2)
  - Contusion [Recovering/Resolving]
  - Pruritus [Recovering/Resolving]
